FAERS Safety Report 7290691-2 (Version None)
Quarter: 2011Q1

REPORT INFORMATION
  Report Type: 
  Country: None (occurrence: None)
  Receive Date: 20110214
  Receipt Date: 20110208
  Transmission Date: 20110831
  Serious: Yes (Hospitalization)
  Sender: FDA-Public Use
  Company Number: CA-ROCHE-665414

PATIENT
  Sex: Female
  Weight: 44.3 kg

DRUGS (12)
  1. PEGINTERFERON ALFA-2A [Suspect]
     Indication: HEPATITIS C
     Dosage: REPORTED STRENGTH: 180 G/ML, 45 G/M2 WEEKLY
     Route: 058
     Dates: start: 20090518, end: 20101016
  2. RIBAVIRIN [Suspect]
     Indication: HEPATITIS C
     Route: 048
     Dates: start: 20090518, end: 20091022
  3. RIBAVIRIN [Suspect]
     Route: 048
     Dates: start: 20090731, end: 20100128
  4. BLINDED BI 201335 NA [Suspect]
     Route: 048
     Dates: end: 20091029
  5. PEGINTERFERON ALFA-2A [Suspect]
     Dosage: REPORTED STRENGTH: 180 G/ML, DOSE: 90 MICROGRAMS
     Route: 058
     Dates: start: 20090803
  6. BI 201335 [Suspect]
     Indication: HEPATITIS C
     Dosage: PRETREATMENT
     Route: 065
  7. PEGINTERFERON ALFA-2A [Suspect]
     Dosage: REPORTED STRENGTH: 180 G/ML, 45 G/ML WEEKLY
     Route: 058
     Dates: start: 20090518, end: 20100122
  8. PEGINTERFERON ALFA-2A [Suspect]
     Dosage: REPORTED STRENGTH: 180 G/ML
     Route: 058
     Dates: start: 20091002, end: 20100122
  9. BLINDED BI 201335 NA [Suspect]
     Indication: HEPATITIS C
     Route: 048
     Dates: start: 20090518, end: 20091022
  10. PEGINTERFERON ALFA-2A [Suspect]
     Dosage: DOSE: 135 MICROGRAMS, STRENGTH: 180 G/ML
     Route: 058
     Dates: start: 20090727
  11. RIBAVIRIN [Suspect]
     Dosage: DOSE: 800 MG
     Route: 048
     Dates: start: 20090723
  12. RIBAVIRIN [Suspect]
     Route: 048
     Dates: start: 20090518, end: 20100128

REACTIONS (6)
  - ANAEMIA [None]
  - NEPHROLITHIASIS [None]
  - FEBRILE NEUTROPENIA [None]
  - HAEMATURIA [None]
  - PANCYTOPENIA [None]
  - THROMBOCYTOPENIA [None]
